FAERS Safety Report 5814074-4 (Version None)
Quarter: 2008Q3

REPORT INFORMATION
  Report Type: 
  Country: None (occurrence: None)
  Receive Date: 20080717
  Receipt Date: 20080707
  Transmission Date: 20090109
  Serious: No
  Sender: FDA-Public Use
  Company Number: US-BOEHRINGER INGELHEIM GMBH, GERMANY-2008-BP-09760BP

PATIENT
  Age: 78 Year
  Sex: Female

DRUGS (9)
  1. SPIRIVA [Suspect]
     Indication: CHRONIC OBSTRUCTIVE PULMONARY DISEASE
     Route: 055
     Dates: start: 20060101
  2. FOSAMAX [Concomitant]
  3. LIPITOR [Concomitant]
  4. NASONEX [Concomitant]
     Indication: MULTIPLE ALLERGIES
  5. LISINOPRIL [Concomitant]
     Indication: BLOOD PRESSURE
  6. ADVAIR DISKUS 100/50 [Concomitant]
  7. ALBUTEROL [Concomitant]
  8. OXYGEN [Concomitant]
  9. ASPIRIN [Concomitant]

REACTIONS (1)
  - DYSPNOEA [None]
